FAERS Safety Report 9881128 (Version 1)
Quarter: 2014Q1

REPORT INFORMATION
  Report Type: Spontaneous
  Country: US (occurrence: US)
  Receive Date: 20140207
  Receipt Date: 20140207
  Transmission Date: 20141002
  Serious: No
  Sender: FDA-Public Use
  Company Number: US-009507513-1402USA000233

PATIENT
  Sex: Male

DRUGS (4)
  1. PEGINTRON [Suspect]
     Indication: HEPATITIS C
     Dosage: 150 MCG, ONCE WEEK
     Route: 058
     Dates: start: 20131018
  2. REBETOL [Suspect]
     Route: 048
  3. BENADRYL [Concomitant]
  4. ADVIL [Concomitant]

REACTIONS (3)
  - Dysphonia [Unknown]
  - Cough [Unknown]
  - Headache [Unknown]
